FAERS Safety Report 18684505 (Version 1)
Quarter: 2020Q4

REPORT INFORMATION
  Report Type: Spontaneous
  Country: CN (occurrence: CN)
  Receive Date: 20201230
  Receipt Date: 20201230
  Transmission Date: 20210114
  Serious: No
  Sender: FDA-Public Use
  Company Number: CN-LUPIN PHARMACEUTICALS INC.-2020-08114

PATIENT
  Age: 37 Year
  Sex: Female

DRUGS (5)
  1. SECUKINUMAB. [Suspect]
     Active Substance: SECUKINUMAB
     Indication: PUSTULAR PSORIASIS
     Dosage: 300 MILLIGRAM
     Route: 058
  2. CEFUROXIME. [Suspect]
     Active Substance: CEFUROXIME
     Indication: PUSTULAR PSORIASIS
     Dosage: UNK, SYSTEMATIC TREATMENT
     Route: 065
  3. ALBUMIN [Suspect]
     Active Substance: ALBUMIN HUMAN
     Indication: PUSTULAR PSORIASIS
     Dosage: UNK
     Route: 042
  4. POTASSIUM CHLORIDE. [Suspect]
     Active Substance: POTASSIUM CHLORIDE
     Indication: PUSTULAR PSORIASIS
     Dosage: UNK
     Route: 048
  5. SECUKINUMAB. [Suspect]
     Active Substance: SECUKINUMAB
     Dosage: TWO INJECTIONS; ON DAY 7 AFTER THE FIRST INJECTION AND OTHER DAY 14 AFTER THE FIRST INJECTION
     Route: 058

REACTIONS (2)
  - Exposure during pregnancy [Unknown]
  - Normal newborn [Unknown]
